FAERS Safety Report 7864450-3 (Version None)
Quarter: 2011Q4

REPORT INFORMATION
  Report Type: 
  Country: None (occurrence: None)
  Receive Date: 20111028
  Receipt Date: 20111024
  Transmission Date: 20120403
  Serious: Yes (Death)
  Sender: FDA-Public Use
  Company Number: PHEH2011US07628

PATIENT
  Sex: Female

DRUGS (1)
  1. ZOMETA [Suspect]
     Dosage: 4 MG/5 ML, QMO

REACTIONS (1)
  - DEATH [None]
